FAERS Safety Report 20373878 (Version 1)
Quarter: 2022Q1

REPORT INFORMATION
  Report Type: Spontaneous
  Country: DE (occurrence: DE)
  Receive Date: 20220125
  Receipt Date: 20220125
  Transmission Date: 20220423
  Serious: Yes (Hospitalization, Other)
  Sender: FDA-Public Use
  Company Number: None

PATIENT
  Age: 69 Year
  Sex: Female

DRUGS (1)
  1. FLUOROURACIL [Suspect]
     Active Substance: FLUOROURACIL
     Indication: Product used for unknown indication
     Route: 042

REACTIONS (6)
  - Nausea [Unknown]
  - Acute kidney injury [Unknown]
  - Decreased appetite [Unknown]
  - Cough [Unknown]
  - Asthenia [Unknown]
  - General physical health deterioration [Unknown]
